FAERS Safety Report 20534402 (Version 2)
Quarter: 2022Q1

REPORT INFORMATION
  Report Type: Other
  Country: CA (occurrence: None)
  Receive Date: 20220302
  Receipt Date: 20220307
  Transmission Date: 20220423
  Serious: No
  Sender: FDA-Public Use
  Company Number: CA-ROCHE-3035333

PATIENT
  Age: 51 Year
  Sex: Female

DRUGS (2)
  1. OCREVUS [Suspect]
     Active Substance: OCRELIZUMAB
     Indication: Relapsing-remitting multiple sclerosis
     Dosage: THEN 600 MG EVERY 6 MONTH
     Route: 042
     Dates: start: 20191223
  2. COVID-19 VACCINE [Concomitant]
     Dosage: 3RD DOSE ON JAN 15TH.

REACTIONS (1)
  - COVID-19 [Recovering/Resolving]

NARRATIVE: CASE EVENT DATE: 20220130
